FAERS Safety Report 5420549-2 (Version None)
Quarter: 2007Q3

REPORT INFORMATION
  Report Type: 
  Country: None (occurrence: None)
  Receive Date: 20070821
  Receipt Date: 20070129
  Transmission Date: 20080115
  Serious: No
  Sender: FDA-Public Use
  Company Number: US-KINGPHARMUSA00001-K200700103

PATIENT

DRUGS (5)
  1. CYTOMEL [Suspect]
     Indication: HYPOTHYROIDISM
     Dosage: 5 MCG, BID
     Dates: start: 19980101, end: 20060101
  2. CYTOMEL [Suspect]
     Dosage: 25 MCG, QD
     Route: 048
     Dates: start: 20061101
  3. SYNTHROID [Concomitant]
     Dosage: UNK, QD
     Route: 048
  4. CLARITIN                           /00917501/ [Concomitant]
     Dosage: UNK, QD
     Route: 048
  5. WELLBUTRIN [Concomitant]
     Dosage: UNK, QD
     Route: 048
     Dates: start: 20061201

REACTIONS (3)
  - DYSPEPSIA [None]
  - DYSPNOEA [None]
  - PALPITATIONS [None]
